FAERS Safety Report 9343607 (Version 1)
Quarter: 2013Q2

REPORT INFORMATION
  Report Type: Spontaneous
  Country: GB (occurrence: None)
  Receive Date: 20130610
  Receipt Date: 20130610
  Transmission Date: 20140414
  Serious: Yes (Hospitalization)
  Sender: FDA-Public Use
  Company Number: AUR-APL-2013-04738

PATIENT
  Age: 67 Year
  Sex: Male

DRUGS (7)
  1. PIOGLITAZONE [Suspect]
     Indication: PRODUCT USED FOR UNKNOWN INDICATION
     Route: 048
     Dates: start: 20060309, end: 20130502
  2. AMITRIPTYLINE (AMITRIPTYLINE) [Concomitant]
  3. ASPIRIN (ACETYSALICYLIC ACID) [Concomitant]
  4. GLICLAZIDE(GLICLAZIDE) [Concomitant]
  5. METFORMIN (METFORMIN) [Concomitant]
  6. SILDENAFIL (SILDENAFIL) [Concomitant]
  7. SIMVASTATIN (SIMVASTATIN) [Concomitant]

REACTIONS (2)
  - Cardiac failure congestive [None]
  - Pulmonary oedema [None]
